FAERS Safety Report 4715142-0 (Version None)
Quarter: 2005Q3

REPORT INFORMATION
  Report Type: 
  Country: None (occurrence: None)
  Receive Date: 20050715
  Receipt Date: 20050714
  Transmission Date: 20060218
  Serious: Yes (Other)
  Sender: FDA-Public Use
  Company Number: US-GLAXOSMITHKLINE-A0566219A

PATIENT
  Sex: Female

DRUGS (5)
  1. COREG [Suspect]
     Route: 048
     Dates: start: 20040301
  2. INSULIN [Concomitant]
  3. SYNTHROID [Concomitant]
  4. COZAAR [Concomitant]
  5. LIPITOR [Concomitant]

REACTIONS (6)
  - ALTERED VISUAL DEPTH PERCEPTION [None]
  - COLOUR BLINDNESS [None]
  - CONDITION AGGRAVATED [None]
  - DIPLOPIA [None]
  - EYE HAEMORRHAGE [None]
  - FEELING ABNORMAL [None]
